FAERS Safety Report 11751537 (Version 2)
Quarter: 2016Q2

REPORT INFORMATION
  Report Type: Spontaneous
  Country: US (occurrence: US)
  Receive Date: 20151118
  Receipt Date: 20160414
  Transmission Date: 20160815
  Serious: Yes (Hospitalization, Other)
  Sender: FDA-Public Use
  Company Number: US-MDT-ADR-2015-02183

PATIENT
  Sex: Female

DRUGS (5)
  1. MORPHINE [Suspect]
     Active Substance: MORPHINE
     Dosage: 17.2MG/DAY
     Route: 037
  2. CLONIDINE. [Suspect]
     Active Substance: CLONIDINE
     Dosage: 230MCG/DAY
     Route: 037
  3. COMPOUNDED BACLOFEN [Suspect]
     Active Substance: BACLOFEN
     Dosage: 230MCG/DAY
     Route: 037
  4. FENTANYL. [Suspect]
     Active Substance: FENTANYL
     Route: 062
  5. ORAL MEDICATIONS (UNSPECIFIED) [Concomitant]
     Route: 048

REACTIONS (9)
  - Malaise [Unknown]
  - Muscle tightness [Unknown]
  - Urine analysis abnormal [Unknown]
  - Weight decreased [Unknown]
  - Back pain [Unknown]
  - Therapeutic response decreased [Unknown]
  - Drug withdrawal syndrome [Unknown]
  - Fall [Unknown]
  - Vomiting [Unknown]

NARRATIVE: CASE EVENT DATE: 20151104
